FAERS Safety Report 6796207-9 (Version None)
Quarter: 2010Q2

REPORT INFORMATION
  Report Type: 
  Country: None (occurrence: None)
  Receive Date: 20100624
  Receipt Date: 20100624
  Transmission Date: 20101027
  Serious: Yes (Other)
  Sender: FDA-Public Use
  Company Number: None

PATIENT
  Age: 61 Year
  Sex: Female
  Weight: 50.8029 kg

DRUGS (9)
  1. RECLAST [Suspect]
     Indication: DRUG TOLERANCE DECREASED
     Dosage: 5 MG STANDARD DOSE ONCE PER YEAR INFUSION IV
     Route: 042
     Dates: start: 20100304
  2. RECLAST [Suspect]
     Indication: OSTEOPOROSIS
     Dosage: 5 MG STANDARD DOSE ONCE PER YEAR INFUSION IV
     Route: 042
     Dates: start: 20100304
  3. SYNTHROID [Concomitant]
  4. PANTOPRAZOLE [Concomitant]
  5. VIGIFEM [Concomitant]
  6. CALCIUM CARBONATE [Concomitant]
  7. VIT D [Concomitant]
  8. GLUCOSAMINE [Concomitant]
  9. RED YEAST RICE [Concomitant]

REACTIONS (5)
  - BONE PAIN [None]
  - DRUG HYPERSENSITIVITY [None]
  - MYALGIA [None]
  - PARAESTHESIA [None]
  - TENDON PAIN [None]
